FAERS Safety Report 4553810-4 (Version None)
Quarter: 2005Q1

REPORT INFORMATION
  Report Type: 
  Country: None (occurrence: None)
  Receive Date: 20050114
  Receipt Date: 20050114
  Transmission Date: 20050727
  Serious: Yes (Hospitalization)
  Sender: FDA-Public Use
  Company Number: None

PATIENT
  Age: 57 Year
  Sex: Male

DRUGS (7)
  1. MS CONTIN [Suspect]
     Indication: PAIN
     Dosage: 100MG  PO Q6H
     Route: 048
  2. HYDROCODONE [Suspect]
     Dosage: 10MG  PO PRN
     Route: 048
  3. SERTRALINE HCL [Concomitant]
  4. OXYCODONE HCL [Concomitant]
  5. ALPRAZOLAM [Concomitant]
  6. MS CONTIN [Concomitant]
  7. HYDROCODONE [Concomitant]

REACTIONS (2)
  - COMA [None]
  - HYPOVENTILATION [None]
